FAERS Safety Report 8387668-2 (Version None)
Quarter: 2012Q2

REPORT INFORMATION
  Report Type: 
  Country: None (occurrence: None)
  Receive Date: 20120525
  Receipt Date: 20120522
  Transmission Date: 20120825
  Serious: Yes (Other)
  Sender: FDA-Public Use
  Company Number: US-PFIZER INC-2012124074

PATIENT
  Sex: Female
  Weight: 79.365 kg

DRUGS (4)
  1. EFFEXOR [Suspect]
     Indication: DEPRESSION
     Dosage: UNK
     Dates: start: 19950101, end: 19970101
  2. XANAX [Concomitant]
     Indication: ANXIETY
     Dosage: 1 MG, 4X/DAY
  3. WELLBUTRIN [Interacting]
     Indication: DEPRESSION
     Dosage: UNK
     Dates: start: 19970101, end: 19970101
  4. CRESTOR [Concomitant]
     Indication: BLOOD CHOLESTEROL INCREASED
     Dosage: 10 MG, DAILY

REACTIONS (8)
  - DRUG INTERACTION [None]
  - DIZZINESS [None]
  - MALAISE [None]
  - HALLUCINATION [None]
  - FEELING ABNORMAL [None]
  - DYSSTASIA [None]
  - VOMITING [None]
  - VERTIGO [None]
